FAERS Safety Report 11008696 (Version 1)
Quarter: 2015Q2

REPORT INFORMATION
  Report Type: Spontaneous
  Country: US (occurrence: None)
  Receive Date: 20150403
  Receipt Date: 20150403
  Transmission Date: 20150821
  Serious: Yes (Hospitalization, Other)
  Sender: FDA-Public Use
  Company Number: 2015TUS000900

PATIENT
  Age: 54 Year
  Sex: Male
  Weight: 95.7 kg

DRUGS (15)
  1. CARVEDILOL. [Concomitant]
     Active Substance: CARVEDILOL
  2. HYDROCODONE/ACETAMINOPHEN (HYDROCODONE, PARACETAMOL) [Concomitant]
  3. TRADJENTA (LINAGLIPTIN) [Concomitant]
  4. ONE TOUCH DELICA LANCING DEV MISCELLANEOUS (GLUCOSE) [Concomitant]
  5. SIMVASTATIN. [Concomitant]
     Active Substance: SIMVASTATIN
  6. VASCEPA (ICOSAPENT) [Concomitant]
  7. KLOR-CON M20 (POTASSIUM CHLORIDE) [Concomitant]
  8. CONTRAVE [Suspect]
     Active Substance: BUPROPION HYDROCHLORIDE\NALTREXONE HYDROCHLORIDE
     Indication: OBESITY
     Route: 048
     Dates: start: 20141210, end: 20141225
  9. ISOSORBIDE MONONITRATE EXTENDED RELEASE [Concomitant]
     Active Substance: ISOSORBIDE MONONITRATE
  10. NITROSTAT (GYCERYL TRINITRATE) [Concomitant]
  11. XARELTO [Concomitant]
     Active Substance: RIVAROXABAN
  12. POTASSIUM CHLORIDE CRYS ER [Concomitant]
  13. FOLBIC (CYANOCOBALAMIN FOLIC ACID PYRIDOXINE HYDROCHLORIDE) [Concomitant]
  14. NORTRIPTYLINE HCL (NORTRIPTYLINE HYDROCHLORIDE) [Concomitant]
  15. ONE TOUCH VERIO (GLUCOSE) [Concomitant]

REACTIONS (1)
  - Generalised tonic-clonic seizure [None]

NARRATIVE: CASE EVENT DATE: 20141225
